FAERS Safety Report 5947634-0 (Version None)
Quarter: 2008Q4

REPORT INFORMATION
  Report Type: 
  Country: None (occurrence: None)
  Receive Date: 20081107
  Receipt Date: 20081030
  Transmission Date: 20090506
  Serious: Yes (Death)
  Sender: FDA-Public Use
  Company Number: CERZ-1000405

PATIENT
  Age: 51 Year
  Sex: Male

DRUGS (1)
  1. CEREZYME [Suspect]
     Indication: GAUCHER'S DISEASE
     Dosage: INTRAVENOUS
     Route: 042
     Dates: start: 19970101, end: 20080101

REACTIONS (4)
  - BONE DISORDER [None]
  - DIALYSIS [None]
  - MULTIPLE MYELOMA [None]
  - RENAL FAILURE [None]
